FAERS Safety Report 15756928 (Version 4)
Quarter: 2019Q2

REPORT INFORMATION
  Report Type: Report from Study
  Country: US (occurrence: US)
  Receive Date: 20181224
  Receipt Date: 20190508
  Transmission Date: 20190711
  Serious: Yes (Death, Life-Threatening, Hospitalization, Disabling, Other)
  Sender: FDA-Public Use
  Company Number: US-BRISTOL-MYERS SQUIBB COMPANY-BMS-2018-119865

PATIENT
  Age: 61 Year
  Sex: Male
  Weight: 116.4 kg

DRUGS (5)
  1. ASPRIN [Concomitant]
     Active Substance: ASPIRIN
     Indication: CARDIOVASCULAR EVENT PROPHYLAXIS
     Dosage: 81 MILLIGRAM, QD
     Route: 048
     Dates: end: 20190501
  2. NICODERM CQ [Concomitant]
     Active Substance: NICOTINE
     Indication: TOBACCO USER
     Dosage: UNK
     Route: 061
     Dates: end: 20190501
  3. IPILIMUMAB [Suspect]
     Active Substance: IPILIMUMAB
     Indication: TRANSITIONAL CELL CARCINOMA
     Dosage: 1 MG/KG, Q3WK
     Route: 042
     Dates: start: 20181129, end: 20181129
  4. ACETAMINOPHEN. [Concomitant]
     Active Substance: ACETAMINOPHEN
     Indication: PAIN
     Dosage: UNK
     Route: 048
     Dates: end: 20190501
  5. NIVOLUMAB [Suspect]
     Active Substance: NIVOLUMAB
     Indication: TRANSITIONAL CELL CARCINOMA
     Dosage: 3 MILLIGRAM/KILOGRAM, Q3WK
     Route: 042
     Dates: start: 20181129, end: 20181129

REACTIONS (3)
  - Encephalitis [Fatal]
  - Brain oedema [Unknown]
  - Status epilepticus [Unknown]

NARRATIVE: CASE EVENT DATE: 20181217
